FAERS Safety Report 5270783-X (Version None)
Quarter: 2007Q1

REPORT INFORMATION
  Report Type: 
  Country: None (occurrence: None)
  Receive Date: 20070319
  Receipt Date: 20070319
  Transmission Date: 20070707
  Serious: Yes (Other)
  Sender: FDA-Public Use
  Company Number: None

PATIENT
  Age: 36 Year
  Sex: Female
  Weight: 96.6162 kg

DRUGS (1)
  1. GENERIC OF ORTHOMICRONOR ONE TAB BARR LABS [Suspect]
     Indication: MIGRAINE
     Dosage: ONE TABLET DAILY PO
     Route: 048
     Dates: start: 20060110, end: 20060116

REACTIONS (3)
  - DRUG INEFFECTIVE [None]
  - MIGRAINE [None]
  - PHARMACEUTICAL PRODUCT COMPLAINT [None]
